FAERS Safety Report 5352161-8 (Version None)
Quarter: 2007Q2

REPORT INFORMATION
  Report Type: 
  Country: None (occurrence: None)
  Receive Date: 20070606
  Receipt Date: 20070521
  Transmission Date: 20071010
  Serious: Yes (Other)
  Sender: FDA-Public Use
  Company Number: 8022483

PATIENT
  Sex: Male
  Weight: 120 kg

DRUGS (5)
  1. KEPPRA [Suspect]
     Indication: EPILEPSY
     Dosage: 750 MG 4/D PO
     Route: 048
  2. KEPPRA [Suspect]
     Indication: EPILEPSY
     Dosage: PO
     Route: 048
  3. TOPAMAX [Suspect]
     Indication: EPILEPSY
     Dates: end: 20060330
  4. PHENHYDAN /00017401/. MFR: NOT SPECIFIED [Suspect]
     Indication: EPILEPSY
     Dosage: 375 MG /D PO
     Route: 048
  5. ORHIRIL LONG [Suspect]
     Indication: EPILEPSY
     Dosage: 4000 MG /D PO
     Route: 048

REACTIONS (1)
  - LEUKOPENIA [None]
